FAERS Safety Report 9234157 (Version 2)
Quarter: 2013Q2

REPORT INFORMATION
  Report Type: Spontaneous
  Country: BE (occurrence: BE)
  Receive Date: 20130416
  Receipt Date: 20130531
  Transmission Date: 20140414
  Serious: Yes (Other)
  Sender: FDA-Public Use
  Company Number: BE-ROCHE-1213154

PATIENT
  Sex: Female

DRUGS (5)
  1. XOLAIR [Suspect]
     Indication: ASTHMA
     Route: 058
  2. XOLAIR [Suspect]
     Route: 058
  3. XOLAIR [Suspect]
     Route: 058
  4. INUVAIR [Concomitant]
  5. AVONEX [Concomitant]

REACTIONS (4)
  - Serum sickness [Recovered/Resolved]
  - Asthenia [Recovered/Resolved]
  - Hypersensitivity [Unknown]
  - Asthma [Unknown]
